FAERS Safety Report 21726194 (Version 1)
Quarter: 2022Q4

REPORT INFORMATION
  Report Type: Spontaneous
  Country: US (occurrence: US)
  Receive Date: 20221214
  Receipt Date: 20221214
  Transmission Date: 20230112
  Serious: No
  Sender: FDA-Public Use
  Company Number: US-NOVEN PHARMACEUTICALS, INC.-2022-NOV-US000584

PATIENT
  Sex: Female

DRUGS (3)
  1. ESTRADIOL [Interacting]
     Active Substance: ESTRADIOL
     Indication: Trans-sexualism
     Dosage: 0.1 MG, 2/WEEK
     Route: 062
  2. ESTRADIOL [Interacting]
     Active Substance: ESTRADIOL
     Indication: Gender dysphoria
     Dosage: 0.75 MG, 2/WEEK
     Route: 062
     Dates: start: 2019
  3. ESTRADIOL [Interacting]
     Active Substance: ESTRADIOL
     Indication: Off label use

REACTIONS (7)
  - Appetite disorder [Unknown]
  - Weight decreased [Unknown]
  - Application site erythema [Not Recovered/Not Resolved]
  - Application site pruritus [Not Recovered/Not Resolved]
  - Application site rash [Not Recovered/Not Resolved]
  - Weight increased [Unknown]
  - Off label use [Not Recovered/Not Resolved]

NARRATIVE: CASE EVENT DATE: 20190101
